FAERS Safety Report 9559239 (Version 2)
Quarter: 2013Q3

REPORT INFORMATION
  Report Type: Spontaneous
  Country: CO (occurrence: CO)
  Receive Date: 20130927
  Receipt Date: 20130927
  Transmission Date: 20140515
  Serious: Yes (Other)
  Sender: FDA-Public Use
  Company Number: CO-AMGEN-COLSP2013052569

PATIENT
  Age: 52 Year
  Sex: Female

DRUGS (4)
  1. ENBREL [Suspect]
     Indication: RHEUMATOID ARTHRITIS
     Dosage: 50 MG, WEEKLY
     Route: 058
     Dates: start: 201205, end: 201308
  2. CALCIUM [Concomitant]
     Indication: RHEUMATOID ARTHRITIS
     Dosage: 2 SPOON PER DAY
     Route: 048
  3. IBUPROFEN [Concomitant]
     Indication: RHEUMATOID ARTHRITIS
     Dosage: UNK DAILY
     Route: 048
  4. PREDNISOLON                        /00016201/ [Concomitant]
     Indication: RHEUMATOID ARTHRITIS
     Dosage: UNK, DAILY
     Route: 048

REACTIONS (4)
  - Cataract [Recovering/Resolving]
  - Cardiac murmur [Not Recovered/Not Resolved]
  - Eye irritation [Recovering/Resolving]
  - Lacrimation increased [Recovering/Resolving]
